FAERS Safety Report 8036888-5 (Version None)
Quarter: 2012Q1

REPORT INFORMATION
  Report Type: 
  Country: None (occurrence: None)
  Receive Date: 20120111
  Receipt Date: 20120107
  Transmission Date: 20120608
  Serious: No
  Sender: FDA-Public Use
  Company Number: US-PFIZER INC-2012005037

PATIENT
  Sex: Female
  Weight: 67.574 kg

DRUGS (2)
  1. MULTI-VITAMINS [Concomitant]
     Dosage: UNK
  2. ADVIL LIQUI-GELS [Suspect]
     Indication: ARTHRALGIA
     Dosage: UNK
     Dates: start: 20120105, end: 20120106

REACTIONS (2)
  - MALAISE [None]
  - NAUSEA [None]
